FAERS Safety Report 7715077-5 (Version None)
Quarter: 2011Q3

REPORT INFORMATION
  Report Type: 
  Country: None (occurrence: None)
  Receive Date: 20110829
  Receipt Date: 20110815
  Transmission Date: 20111222
  Serious: Yes (Hospitalization, Other)
  Sender: FDA-Public Use
  Company Number: PHHY2011BR12866

PATIENT
  Age: 22 Year
  Sex: Male
  Weight: 80 kg

DRUGS (10)
  1. HALDOL [Concomitant]
     Indication: SCHIZOPHRENIA
     Dosage: 5 MG, 1 TABLET TWICE A DAY
     Route: 048
  2. CHLORPROMAZINE [Concomitant]
     Indication: SCHIZOPHRENIA
     Dosage: 100 MG, 1 TABLET 3 TIMES A DAY
  3. AKINETON [Concomitant]
     Indication: SCHIZOPHRENIA
     Dosage: 1 TABLET TWICE A DAY
     Route: 048
  4. CLOZAPINE [Suspect]
     Indication: SCHIZOPHRENIA
     Dosage: 3 CAPSULES AT ONCE IN THE MORNING AND 5 CAPSULES AT NIGHT AT NIGHT
     Route: 048
  5. CLOZAPINE [Suspect]
     Dosage: 1 TABLET 3 TIMES A DAY
     Route: 048
  6. PHENERGAN [Concomitant]
     Indication: SCHIZOPHRENIA
     Dosage: 25 MG, 1 TABLET 3 TIMES A DAY
  7. GARDENAL ^AVENTIS^ [Concomitant]
  8. ABILIFY [Concomitant]
  9. CLOZAPINE [Suspect]
     Indication: CONVULSION
     Dosage: 100 MG, UNK
  10. PHENOBARBITAL TAB [Concomitant]
     Indication: SCHIZOPHRENIA
     Dosage: 100 MG, 1 TABLET A DAY
     Route: 048

REACTIONS (11)
  - BACTERIAL INFECTION [None]
  - MALAISE [None]
  - WEIGHT INCREASED [None]
  - RESPIRATORY ARREST [None]
  - PRURITUS [None]
  - ABNORMAL BEHAVIOUR [None]
  - WOUND [None]
  - DECREASED APPETITE [None]
  - RED BLOOD CELL COUNT DECREASED [None]
  - WHITE BLOOD CELL COUNT DECREASED [None]
  - MOVEMENT DISORDER [None]
